FAERS Safety Report 20029566 (Version 2)
Quarter: 2021Q4

REPORT INFORMATION
  Report Type: Spontaneous
  Country: US (occurrence: US)
  Receive Date: 20211103
  Receipt Date: 20211203
  Transmission Date: 20220303
  Serious: No
  Sender: FDA-Public Use
  Company Number: US-PFIZER INC-202101408133

PATIENT

DRUGS (1)
  1. PREMARIN [Suspect]
     Active Substance: ESTROGENS, CONJUGATED
     Dosage: ONE APPLICATORFULL (2G) PER VAG EVERY OTHER DAY FOR 2-3 WEEKS PER MONTH
     Route: 067

REACTIONS (5)
  - COVID-19 [Unknown]
  - Malaise [Unknown]
  - Product use issue [Unknown]
  - Off label use [Unknown]
  - Product prescribing error [Unknown]
